FAERS Safety Report 22625483 (Version 1)
Quarter: 2023Q2

REPORT INFORMATION
  Report Type: Spontaneous
  Country: JP (occurrence: JP)
  Receive Date: 20230621
  Receipt Date: 20230621
  Transmission Date: 20230722
  Serious: Yes (Death, Other)
  Sender: FDA-Public Use
  Company Number: JP-ABBVIE-5298860

PATIENT
  Age: 43 Year
  Sex: Female

DRUGS (2)
  1. VENCLEXTA [Suspect]
     Active Substance: VENETOCLAX
     Indication: Acute myeloid leukaemia
     Dosage: 2 CYCLES
     Route: 048
  2. AZACITIDINE [Concomitant]
     Active Substance: AZACITIDINE
     Indication: Acute myeloid leukaemia
     Dosage: 2 CYCLES
     Route: 058

REACTIONS (8)
  - Thrombotic microangiopathy [Fatal]
  - Platelet count decreased [Unknown]
  - Febrile neutropenia [Unknown]
  - Venoocclusive liver disease [Fatal]
  - Rash [Unknown]
  - Liver disorder [Unknown]
  - Anaemia [Unknown]
  - Neutrophil count decreased [Unknown]
